FAERS Safety Report 4724313-9 (Version None)
Quarter: 2005Q3

REPORT INFORMATION
  Report Type: 
  Country: None (occurrence: None)
  Receive Date: 20050722
  Receipt Date: 20050713
  Transmission Date: 20060218
  Serious: Yes (Life-Threatening, Hospitalization)
  Sender: FDA-Public Use
  Company Number: 2005-06-1692

PATIENT
  Age: 47 Year
  Sex: Male

DRUGS (3)
  1. ROFERON-A [Suspect]
     Indication: HEPATITIS C
     Dosage: 6 MU TIW SUBCUTANEOUS
     Route: 058
     Dates: start: 20000101, end: 20020301
  2. REBETOL [Suspect]
     Indication: HEPATITIS C
     Dosage: 2000 MG WD ORAL
     Route: 048
     Dates: start: 20010201, end: 20020301
  3. MIRTAZAPINE [Concomitant]

REACTIONS (15)
  - ANHEDONIA [None]
  - APATHY [None]
  - DECREASED INTEREST [None]
  - DEPRESSED MOOD [None]
  - DEPRESSION [None]
  - DISTURBANCE IN ATTENTION [None]
  - EMOTIONAL DISORDER [None]
  - INFLUENZA LIKE ILLNESS [None]
  - INSOMNIA [None]
  - INTERVERTEBRAL DISC OPERATION [None]
  - LIBIDO DECREASED [None]
  - SLEEP DISORDER [None]
  - SOCIAL AVOIDANT BEHAVIOUR [None]
  - SUICIDAL IDEATION [None]
  - SUICIDE ATTEMPT [None]
